FAERS Safety Report 7526817-2 (Version None)
Quarter: 2011Q2

REPORT INFORMATION
  Report Type: 
  Country: None (occurrence: None)
  Receive Date: 20110606
  Receipt Date: 20110503
  Transmission Date: 20111010
  Serious: No
  Sender: FDA-Public Use
  Company Number: US-BAYER-2011-039738

PATIENT
  Sex: Male

DRUGS (3)
  1. CLARITIN [Concomitant]
  2. ALEVE (CAPLET) [Suspect]
     Indication: NASOPHARYNGITIS
     Dosage: UNK
  3. NYQUIL [Concomitant]
     Indication: NASOPHARYNGITIS

REACTIONS (1)
  - NASOPHARYNGITIS [None]
